FAERS Safety Report 4847069-8 (Version None)
Quarter: 2005Q4

REPORT INFORMATION
  Report Type: 
  Country: None (occurrence: None)
  Receive Date: 20051205
  Receipt Date: 20051205
  Transmission Date: 20060501
  Serious: Yes (Life-Threatening, Other)
  Sender: FDA-Public Use
  Company Number: None

PATIENT
  Age: 53 Year
  Sex: Female
  Weight: 90.7194 kg

DRUGS (6)
  1. LEVOTHYROXINE 50 MCG MOVA [Suspect]
     Indication: HYPOTHYROIDISM
     Dosage: ONE TABLT ONCE PER DAY PO
     Route: 048
     Dates: start: 20051117, end: 20051127
  2. ZANTAC [Concomitant]
  3. NAPROXEN [Concomitant]
  4. ALLUPENT [Concomitant]
  5. HYDROCORTISONE [Concomitant]
  6. NASALCORT -TRIAMCINOLONE ACETONIDE [Concomitant]

REACTIONS (3)
  - ABDOMINAL DISCOMFORT [None]
  - ORAL MUCOSAL BLISTERING [None]
  - PHARMACEUTICAL PRODUCT COMPLAINT [None]
